FAERS Safety Report 6835652-X (Version None)
Quarter: 2010Q3

REPORT INFORMATION
  Report Type: 
  Country: None (occurrence: None)
  Receive Date: 20100713
  Receipt Date: 20100707
  Transmission Date: 20110219
  Serious: Yes (Death)
  Sender: FDA-Public Use
  Company Number: US-JNJFOC-20100508675

PATIENT
  Sex: Female

DRUGS (4)
  1. ELMIRON [Suspect]
     Indication: BLADDER PAIN
     Route: 048
  2. ELMIRON [Suspect]
     Indication: CYSTITIS INTERSTITIAL
     Route: 048
  3. HEPARIN [Suspect]
     Indication: ANTICOAGULANT THERAPY
     Route: 042
  4. TORADOL [Suspect]
     Indication: PRODUCT USED FOR UNKNOWN INDICATION
     Route: 065

REACTIONS (3)
  - HAEMORRHAGE [None]
  - HIATUS HERNIA [None]
  - ORGAN FAILURE [None]
